FAERS Safety Report 22589196 (Version 1)
Quarter: 2023Q2

REPORT INFORMATION
  Report Type: Spontaneous
  Country: US (occurrence: None)
  Receive Date: 20230609
  Receipt Date: 20230609
  Transmission Date: 20230722
  Serious: No
  Sender: FDA-Public Use
  Company Number: None

PATIENT
  Sex: Female

DRUGS (16)
  1. CAPECITABINE [Suspect]
     Active Substance: CAPECITABINE
     Indication: Breast cancer female
     Dosage: 2T BID PO PO 14DON7DOFF?
     Route: 050
  2. ALEVE [Concomitant]
     Active Substance: NAPROXEN SODIUM
  3. ALLEGRA [Concomitant]
     Active Substance: FEXOFENADINE HYDROCHLORIDE
  4. AMBIEN [Concomitant]
  5. COSOPT [Concomitant]
     Active Substance: DORZOLAMIDE HYDROCHLORIDE\TIMOLOL MALEATE
  6. VITAMIN B12 [Concomitant]
     Active Substance: CYANOCOBALAMIN
  7. VITAMIN D3 [Suspect]
     Active Substance: CHOLECALCIFEROL
  8. FLUTICASONE [Concomitant]
  9. MAGNESIUM [Concomitant]
  10. SYNTHROID [Concomitant]
  11. XANAX [Concomitant]
     Active Substance: ALPRAZOLAM
  12. LUMIGAN [Concomitant]
  13. ASPIRIN [Concomitant]
  14. CYCLOBENZAPRINE [Concomitant]
  15. METOPROLOL [Concomitant]
  16. TRAVATAN [Concomitant]
     Active Substance: TRAVOPROST

REACTIONS (1)
  - Drug ineffective [None]
